FAERS Safety Report 7760748-8 (Version None)
Quarter: 2011Q3

REPORT INFORMATION
  Report Type: 
  Country: None (occurrence: None)
  Receive Date: 20110919
  Receipt Date: 20110913
  Transmission Date: 20111222
  Serious: Yes (Death, Other)
  Sender: FDA-Public Use
  Company Number: CH-SANOFI-AVENTIS-2011SA060012

PATIENT
  Age: 83 Year
  Sex: Male

DRUGS (13)
  1. REMERON [Interacting]
     Route: 048
     Dates: end: 20110805
  2. PRAVASTATIN [Concomitant]
     Dates: end: 20110805
  3. HALDOL [Concomitant]
     Dates: end: 20110805
  4. TORSEMIDE [Concomitant]
     Dates: end: 20110805
  5. LEVOFLOXACIN [Concomitant]
     Indication: BRONCHOPNEUMONIA
     Dates: start: 20110603, end: 20110609
  6. METOPROLOL SUCCINATE [Concomitant]
     Dates: end: 20110805
  7. PRADIF [Concomitant]
     Dates: end: 20110805
  8. FOLIC ACID [Concomitant]
     Dates: end: 20110805
  9. NITRODERM [Concomitant]
     Dates: end: 20110805
  10. ENOXAPARIN SODIUM [Interacting]
     Route: 058
     Dates: start: 20110530, end: 20110621
  11. ACETAMINOPHEN [Concomitant]
     Dates: end: 20110805
  12. PLAVIX [Suspect]
     Route: 048
     Dates: end: 20110805
  13. EPRIL [Concomitant]
     Dates: end: 20110805

REACTIONS (3)
  - SUDDEN DEATH [None]
  - DRUG INTERACTION [None]
  - PURPURA [None]
